FAERS Safety Report 23225292 (Version 1)
Quarter: 2023Q4

REPORT INFORMATION
  Report Type: Spontaneous
  Country: US (occurrence: US)
  Receive Date: 20231124
  Receipt Date: 20231124
  Transmission Date: 20240110
  Serious: Yes (Other)
  Sender: FDA-Public Use
  Company Number: US-BRISTOL-MYERS SQUIBB COMPANY-2023-168195

PATIENT
  Age: 76 Year
  Sex: Male

DRUGS (1)
  1. ZEPOSIA [Suspect]
     Active Substance: OZANIMOD HYDROCHLORIDE
     Indication: Product used for unknown indication
     Dosage: 0.92 MG, TAKE 1 CAPSULE BY MOUTH ONCE DAILY
     Route: 048

REACTIONS (3)
  - Sinus headache [Unknown]
  - Astigmatism [Unknown]
  - Back disorder [Unknown]

NARRATIVE: CASE EVENT DATE: 20231110
